FAERS Safety Report 17314477 (Version 1)
Quarter: 2020Q1

REPORT INFORMATION
  Report Type: Spontaneous
  Country: US (occurrence: US)
  Receive Date: 20200124
  Receipt Date: 20200124
  Transmission Date: 20200409
  Serious: No
  Sender: FDA-Public Use
  Company Number: US-SUN PHARMACEUTICAL INDUSTRIES LTD-2019R1-219545

PATIENT
  Sex: Female

DRUGS (1)
  1. IMATINIB. [Suspect]
     Active Substance: IMATINIB MESYLATE
     Indication: BREAST CANCER
     Dosage: 100 MICROGRAM, TID
     Route: 048

REACTIONS (2)
  - Product dose omission [Unknown]
  - Product container seal issue [Unknown]

NARRATIVE: CASE EVENT DATE: 2019
